FAERS Safety Report 6196253-2 (Version None)
Quarter: 2009Q2

REPORT INFORMATION
  Report Type: 
  Country: None (occurrence: None)
  Receive Date: 20090518
  Receipt Date: 20090507
  Transmission Date: 20091009
  Serious: Yes (Death, Other)
  Sender: FDA-Public Use
  Company Number: 2008-04845

PATIENT
  Age: 74 Year
  Sex: Male
  Weight: 53 kg

DRUGS (17)
  1. VELCADE [Suspect]
     Indication: MULTIPLE MYELOMA
     Dosage: 2 MG, INTRAVENOUS
     Route: 042
     Dates: start: 20070925, end: 20071004
  2. ADRIAMYCIN PFS [Suspect]
     Indication: DRUG USE FOR UNKNOWN INDICATION
     Dosage: 10 MG, INTRAVENOUS
     Route: 042
     Dates: start: 20070928, end: 20071001
  3. DEXAMETHASONE 4MG TAB [Concomitant]
  4. AREDIA [Concomitant]
  5. MAXIPIME [Concomitant]
  6. PLATELETS [Concomitant]
  7. POLARAMINE [Concomitant]
  8. KYTRIL [Concomitant]
  9. LASIX [Concomitant]
  10. RED BLOOD CELLS [Concomitant]
  11. NEUTROGIN [Concomitant]
  12. SELBEX (TEPRENONE) [Concomitant]
  13. ITRACONAZOLE [Concomitant]
  14. MAG-LAX (MAGNESIUM HYDROXIDE, PARAFFIN, LIQUID) [Concomitant]
  15. OMEPRAZOLE [Concomitant]
  16. ZOLPIDEM TARTRATE [Concomitant]
  17. PURSENNID (SENNA LEAF) [Concomitant]

REACTIONS (16)
  - ABASIA [None]
  - ANAEMIA [None]
  - BACTERIAL INFECTION [None]
  - DISEASE PROGRESSION [None]
  - FLUID RETENTION [None]
  - HYPERSENSITIVITY [None]
  - HYPOAESTHESIA [None]
  - HYPOKALAEMIA [None]
  - LEUKOPENIA [None]
  - LYMPHOCYTE COUNT DECREASED [None]
  - MALIGNANT NEOPLASM PROGRESSION [None]
  - MULTIPLE MYELOMA [None]
  - NEUROPATHY PERIPHERAL [None]
  - NEUTROPENIA [None]
  - RASH VESICULAR [None]
  - THROMBOCYTOPENIA [None]
